FAERS Safety Report 9245548 (Version 3)
Quarter: 2014Q2

REPORT INFORMATION
  Report Type: Spontaneous
  Country: DK (occurrence: DK)
  Receive Date: 20130422
  Receipt Date: 20140515
  Transmission Date: 20141212
  Serious: Yes (Life-Threatening, Hospitalization, Disabling)
  Sender: FDA-Public Use
  Company Number: DK-SANOFI-AVENTIS-2013SA039338

PATIENT
  Age: 56 Year
  Sex: Female
  Weight: 62 kg

DRUGS (2)
  1. ARAVA [Suspect]
     Indication: RHEUMATOID ARTHRITIS
     Dosage: DOSAGE FORM: 82
     Route: 048
     Dates: start: 20101203, end: 201207
  2. HUMIRA [Suspect]
     Indication: RHEUMATOID ARTHRITIS
     Dosage: FORM: 231, FREQUENCY: 1 EVERY 2 WEEKS
     Route: 058
     Dates: start: 20101203, end: 20121101

REACTIONS (9)
  - Cardiac failure acute [Unknown]
  - Deep vein thrombosis [Unknown]
  - Pulmonary embolism [Unknown]
  - Tendonitis [Unknown]
  - Oedema peripheral [Unknown]
  - Hepatomegaly [Unknown]
  - Ascites [Unknown]
  - Infection [Unknown]
  - Dyspnoea [Unknown]
